FAERS Safety Report 4551848-4 (Version None)
Quarter: 2005Q1

REPORT INFORMATION
  Report Type: 
  Country: None (occurrence: None)
  Receive Date: 20050110
  Receipt Date: 20031203
  Transmission Date: 20050727
  Serious: Yes (Death, Hospitalization)
  Sender: FDA-Public Use
  Company Number: 6838

PATIENT
  Age: 82 Year
  Sex: Male

DRUGS (7)
  1. ETOPOSIDE [Suspect]
     Indication: SMALL CELL LUNG CANCER STAGE UNSPECIFIED
     Dosage: PO
     Route: 048
     Dates: start: 20031031, end: 20031031
  2. CYCLOPHOSPHAMIDE [Suspect]
     Indication: SMALL CELL LUNG CANCER STAGE UNSPECIFIED
     Dosage: PO
     Route: 048
     Dates: start: 20031031, end: 20031031
  3. METOCLOPRAMIDE [Suspect]
     Indication: PROPHYLAXIS OF NAUSEA AND VOMITING
     Dosage: 10 MG TID
     Dates: start: 20031031, end: 20031031
  4. MORPHINE [Concomitant]
  5. FENTANYL [Concomitant]
  6. DEXAMETHASONE [Concomitant]
  7. ROFECOXIB [Concomitant]

REACTIONS (2)
  - ANAPHYLACTOID REACTION [None]
  - CARDIAC FAILURE CONGESTIVE [None]
